FAERS Safety Report 5486412-6 (Version None)
Quarter: 2007Q4

REPORT INFORMATION
  Report Type: 
  Country: None (occurrence: None)
  Receive Date: 20071016
  Receipt Date: 20071004
  Transmission Date: 20080405
  Serious: Yes (Other)
  Sender: FDA-Public Use
  Company Number: JP-ASTRAZENECA-2007AP06423

PATIENT
  Age: 67 Year
  Sex: Female

DRUGS (2)
  1. CRESTOR [Suspect]
     Indication: LIPIDS ABNORMAL
     Route: 048
     Dates: start: 20070702, end: 20070801
  2. CRESTOR [Suspect]
     Route: 048
     Dates: start: 20070801, end: 20070801

REACTIONS (2)
  - CHROMATURIA [None]
  - MYALGIA [None]
